FAERS Safety Report 11575724 (Version 1)
Quarter: 2015Q3

REPORT INFORMATION
  Report Type: Spontaneous
  Country: BR (occurrence: BR)
  Receive Date: 20150930
  Receipt Date: 20150930
  Transmission Date: 20151125
  Serious: Yes (Congenital Anomaly, Other)
  Sender: FDA-Public Use
  Company Number: BR-ELI_LILLY_AND_COMPANY-BR201509005791

PATIENT

DRUGS (4)
  1. HUMULIN N [Suspect]
     Active Substance: INSULIN HUMAN
     Dosage: 11 IU, QD
     Route: 064
     Dates: end: 2015
  2. HUMULIN N [Suspect]
     Active Substance: INSULIN HUMAN
     Dosage: 21 IU, EACH MORNING
     Route: 064
     Dates: end: 20150805
  3. HUMULIN N [Suspect]
     Active Substance: INSULIN HUMAN
     Indication: GESTATIONAL DIABETES
     Dosage: 4 IU, QD
     Route: 064
     Dates: start: 20150601, end: 2015
  4. HUMULIN N [Suspect]
     Active Substance: INSULIN HUMAN
     Dosage: 10 IU, EACH EVENING
     Route: 064
     Dates: end: 20150805

REACTIONS (4)
  - Retrognathia [Unknown]
  - Jaundice neonatal [Unknown]
  - Foetal exposure during pregnancy [Recovered/Resolved]
  - Foetal malposition [Unknown]
